FAERS Safety Report 8634797 (Version 2)
Quarter: 2012Q4

REPORT INFORMATION
  Report Type: Spontaneous
  Country: US (occurrence: None)
  Receive Date: 20120606
  Receipt Date: 20120914
  Transmission Date: 20130627
  Serious: Yes (Other)
  Sender: FDA-Public Use
  Company Number: 1205-275

PATIENT
  Age: 88 Year
  Sex: Male

DRUGS (1)
  1. EYLEA (AFLIBERCEPT) (INJECTION) (AFLIBERCEPT) [Suspect]
     Indication: WET MACULAR DEGENERATION
     Dosage: INTRAVITREAL
     Dates: start: 20120217, end: 20120426

REACTIONS (1)
  - Retinal oedema [None]
